FAERS Safety Report 10853939 (Version 1)
Quarter: 2015Q1

REPORT INFORMATION
  Report Type: Spontaneous
  Country: US (occurrence: None)
  Receive Date: 20150218
  Receipt Date: 20150218
  Transmission Date: 20150721
  Serious: Yes (Other)
  Sender: FDA-Public Use
  Company Number: None

PATIENT
  Age: 17 Year
  Sex: Male

DRUGS (1)
  1. TETRACYCLINE [Suspect]
     Active Substance: TETRACYCLINE
     Indication: ACNE
     Dosage: ONE PILL, ONCE DAILY, TAKEN BY MOUTH
     Route: 048
     Dates: start: 20150203, end: 20150205

REACTIONS (8)
  - Oropharyngeal pain [None]
  - Gastrointestinal perforation [None]
  - Haematemesis [None]
  - Abdominal pain upper [None]
  - Yellow skin [None]
  - Diarrhoea haemorrhagic [None]
  - Pyrexia [None]
  - Influenza [None]

NARRATIVE: CASE EVENT DATE: 20150212
